FAERS Safety Report 8473834-4 (Version None)
Quarter: 2012Q2

REPORT INFORMATION
  Report Type: 
  Country: None (occurrence: None)
  Receive Date: 20120628
  Receipt Date: 20120126
  Transmission Date: 20120825
  Serious: Yes (Death)
  Sender: FDA-Public Use
  Company Number: US-MYLANLABS-2011S1025764

PATIENT
  Age: 78 Year
  Sex: Male

DRUGS (12)
  1. ATROPINE [Concomitant]
  2. CLOZAPINE [Suspect]
     Dates: start: 20100702
  3. CLONAZEPAM [Concomitant]
  4. FUROSEMIDE [Concomitant]
  5. ZOFRAN [Concomitant]
  6. PHENERGAN HCL [Concomitant]
  7. MIRTAZAPINE [Concomitant]
  8. MIRALAX /00754501/ [Concomitant]
  9. MORPHINE [Concomitant]
  10. NITROSTAT [Concomitant]
  11. DULCOLAX [Concomitant]
  12. ACETAMINOPHEN [Concomitant]

REACTIONS (1)
  - DEATH [None]
